FAERS Safety Report 19236417 (Version 1)
Quarter: 2021Q2

REPORT INFORMATION
  Report Type: Other
  Country: US (occurrence: US)
  Receive Date: 20210510
  Receipt Date: 20210510
  Transmission Date: 20210717
  Serious: Yes (Other)
  Sender: FDA-Public Use
  Company Number: US-ROCHE-2821235

PATIENT
  Age: 46 Year
  Sex: Female
  Weight: 139.38 kg

DRUGS (4)
  1. RIFAMPIN. [Suspect]
     Active Substance: RIFAMPIN
     Indication: TUBERCULOSIS
     Route: 048
     Dates: start: 20210427
  2. VITAMIN D3 [Concomitant]
     Active Substance: CHOLECALCIFEROL
     Route: 048
  3. OCREVUS [Suspect]
     Active Substance: OCRELIZUMAB
     Indication: RELAPSING MULTIPLE SCLEROSIS
     Dosage: DATE OF TREATMENT:  09/JAN/2018, 01/AUG/2018, 12/MAR/2019, 19/MAR/2019, 27/SEP/2019, 27/MAR/2020, 05
     Route: 042
     Dates: start: 201801
  4. OCREVUS [Suspect]
     Active Substance: OCRELIZUMAB
     Dosage: DATE OF TREATMENT:  09/JAN/2018, 01/AUG/2018, 12/MAR/2019, 19/MAR/2019, 27/SEP/2019, 27/MAR/2020, 05
     Route: 042

REACTIONS (5)
  - Tuberculosis [Not Recovered/Not Resolved]
  - Gastric ulcer [Recovering/Resolving]
  - Uterine leiomyoma [Recovered/Resolved]
  - Off label use [Unknown]
  - Confusional state [Not Recovered/Not Resolved]

NARRATIVE: CASE EVENT DATE: 20210331
